FAERS Safety Report 8301362-5 (Version None)
Quarter: 2012Q2

REPORT INFORMATION
  Report Type: 
  Country: None (occurrence: None)
  Receive Date: 20120420
  Receipt Date: 20120413
  Transmission Date: 20120825
  Serious: Yes (Hospitalization)
  Sender: FDA-Public Use
  Company Number: US-ABBOTT-12P-163-0925996-00

PATIENT
  Sex: Male

DRUGS (1)
  1. HUMIRA [Suspect]
     Indication: PSORIASIS
     Dates: end: 20110101

REACTIONS (4)
  - SEPSIS [None]
  - CONVULSION [None]
  - PROCEDURAL COMPLICATION [None]
  - GASTROINTESTINAL PERFORATION [None]
